FAERS Safety Report 16259158 (Version 1)
Quarter: 2019Q2

REPORT INFORMATION
  Report Type: Spontaneous
  Country: IE (occurrence: IE)
  Receive Date: 20190501
  Receipt Date: 20190501
  Transmission Date: 20190711
  Serious: Yes (Hospitalization)
  Sender: FDA-Public Use
  Company Number: IE-TEVA-2019-IE-1043319

PATIENT
  Age: 76 Year
  Sex: Female

DRUGS (18)
  1. OXYNORM [Concomitant]
     Active Substance: OXYCODONE HYDROCHLORIDE
     Dosage: EVERY FOUR HOURS, AS NEEDED
  2. LACTULOSE (GENERIC) [Concomitant]
     Dosage: TWICE A DAY
  3. FERROUS FUMARATE (GENERIC) [Concomitant]
     Dosage: 305 MILLIGRAM DAILY; ONCE DAILY
  4. ASCORBIC ACID (G) [Concomitant]
     Dosage: 1 GRAM DAILY;
  5. CLOPIDOGREL (GENERIC) [Concomitant]
     Active Substance: CLOPIDOGREL BISULFATE
     Dosage: 75 MILLIGRAM DAILY; ONCE DAILY
  6. ELIQUIS [Concomitant]
     Active Substance: APIXABAN
     Indication: ATRIAL FIBRILLATION
     Dosage: 5MG TWICE A DAY
  7. CLINDAMYCIN (G) [Suspect]
     Active Substance: CLINDAMYCIN
     Indication: CELLULITIS
     Dosage: 450MG QDS
     Route: 048
     Dates: start: 2019, end: 2019
  8. ROSUVASTATIN (G) [Concomitant]
     Dosage: AT NIGHT
  9. PARACETAMOL [Concomitant]
     Active Substance: ACETAMINOPHEN
     Dosage: 1 GRAM TDS
  10. BISOPROLOL (GENERIC) [Concomitant]
     Dosage: 2.5 MILLIGRAM DAILY; ONCE DAILY
  11. CYCLIZINE (GENERIC) [Concomitant]
     Dosage: TDS, AS NEEDED
  12. IPRAMOL STERI-NEB 0.5MG/2.5MG PER 2.5ML NEBULISER SOLUTION [Concomitant]
     Dosage: 1 NEB TDS
  13. GLICLAZIDE MR [Concomitant]
     Active Substance: GLICLAZIDE
     Dosage: 30 MILLIGRAM DAILY; ONCE DAILY
  14. SPIRONOLACTONE (G) [Concomitant]
     Dosage: 25 MILLIGRAM DAILY; ONCE DAILY
  15. SALAMOL EASI-BREATHE CFC-FREE INHALER [Concomitant]
     Dosage: 2 PUFFS -  QDS, AS NEEDED
  16. CLOTRIMAZOLE (G) [Concomitant]
     Dosage: 1% CREAM TDS
  17. PIRITON 4MG TABLETS [Concomitant]
     Dosage: TDS, AS NEEDED
  18. SENOKOT 7.5MG TABLETS [Concomitant]
     Dosage: AT NIGHT

REACTIONS (1)
  - Rash erythematous [Unknown]

NARRATIVE: CASE EVENT DATE: 20190329
